FAERS Safety Report 4373706-0 (Version None)
Quarter: 2004Q1

REPORT INFORMATION
  Report Type: 
  Country: None (occurrence: None)
  Receive Date: 20040305
  Receipt Date: 20040106
  Transmission Date: 20041129
  Serious: Yes (Other)
  Sender: FDA-Public Use
  Company Number: 2004UW00207

PATIENT

DRUGS (3)
  1. CRESTOR [Suspect]
  2. NIACIN [Suspect]
  3. LIPITOR [Concomitant]

REACTIONS (2)
  - DRUG INTERACTION [None]
  - HEPATIC ENZYME INCREASED [None]
